FAERS Safety Report 24151025 (Version 1)
Quarter: 2024Q3

REPORT INFORMATION
  Report Type: Spontaneous
  Country: US (occurrence: US)
  Receive Date: 20240730
  Receipt Date: 20240730
  Transmission Date: 20241017
  Serious: Yes (Death, Hospitalization, Other)
  Sender: RANBAXY
  Company Number: US-SUN PHARMACEUTICAL INDUSTRIES LTD-2024R1-459353

PATIENT
  Age: 12 Year
  Sex: Male

DRUGS (7)
  1. TOBRAMYCIN [Suspect]
     Active Substance: TOBRAMYCIN\TOBRAMYCIN SULFATE
     Indication: Antibiotic therapy
     Dosage: 320 MILLIGRAM, DAILY
     Route: 065
  2. CEFTAZIDIME [Suspect]
     Active Substance: CEFTAZIDIME
     Indication: Antibiotic therapy
     Dosage: 2 GRAM, TID
     Route: 065
  3. AVIBACTAM [Suspect]
     Active Substance: AVIBACTAM
     Indication: Antibiotic therapy
     Dosage: 2 GRAM, TID
     Route: 065
  4. AZTREONAM [Suspect]
     Active Substance: AZTREONAM
     Indication: Antibiotic therapy
     Dosage: 2 GRAM, QID
     Route: 065
  5. CEFIDEROCOL [Suspect]
     Active Substance: CEFIDEROCOL
     Indication: Antibiotic therapy
     Dosage: 2 GRAM, TID
     Route: 065
  6. POLYMYXIN B [Suspect]
     Active Substance: POLYMYXIN B
     Indication: Antibiotic therapy
     Dosage: UNK (LOADING DOSE OF 1 000 000 U)
     Route: 065
  7. POLYMYXIN B [Suspect]
     Active Substance: POLYMYXIN B
     Dosage: UNK (12 500 U/KG EVERY 12 HOURS)
     Route: 065

REACTIONS (4)
  - Condition aggravated [Fatal]
  - Septic shock [Fatal]
  - Treatment failure [Fatal]
  - Drug resistance [Fatal]
